FAERS Safety Report 18607636 (Version 3)
Quarter: 2021Q1

REPORT INFORMATION
  Report Type: Spontaneous
  Country: US (occurrence: US)
  Receive Date: 20201211
  Receipt Date: 20210301
  Transmission Date: 20210419
  Serious: Yes (Other)
  Sender: FDA-Public Use
  Company Number: US-ELI_LILLY_AND_COMPANY-US202012002335

PATIENT
  Age: 60 Year
  Sex: Female
  Weight: 135.2 kg

DRUGS (15)
  1. AMLODIPINE [Concomitant]
     Active Substance: AMLODIPINE BESYLATE
  2. ULTRAM [Concomitant]
     Active Substance: TRAMADOL HYDROCHLORIDE
  3. BAMLANIVIMAB 700MG [Suspect]
     Active Substance: BAMLANIVIMAB
     Indication: COVID-19
     Dosage: 700 MG, SINGLE
     Route: 041
     Dates: start: 20201114, end: 20201114
  4. VITAMIN D3 [Concomitant]
     Active Substance: CHOLECALCIFEROL
  5. ZOLOFT [Concomitant]
     Active Substance: SERTRALINE HYDROCHLORIDE
  6. LISINOPRIL. [Concomitant]
     Active Substance: LISINOPRIL
  7. AMANTADINE. [Concomitant]
     Active Substance: AMANTADINE HYDROCHLORIDE
  8. DETROL [Concomitant]
     Active Substance: TOLTERODINE TARTRATE
  9. ALBUTEROL [SALBUTAMOL] [Concomitant]
     Active Substance: ALBUTEROL
  10. ATORVASTATIN [Concomitant]
     Active Substance: ATORVASTATIN
  11. LIDOCAINE. [Concomitant]
     Active Substance: LIDOCAINE
  12. FLEXERIL [CEFIXIME] [Concomitant]
     Active Substance: CEFIXIME
  13. TOPROL XL [Concomitant]
     Active Substance: METOPROLOL SUCCINATE
  14. OLMESARTAN [Concomitant]
     Active Substance: OLMESARTAN
  15. UROCIT?K [Concomitant]
     Active Substance: POTASSIUM CITRATE

REACTIONS (2)
  - Chest discomfort [Recovering/Resolving]
  - Cellulitis [Recovering/Resolving]

NARRATIVE: CASE EVENT DATE: 20201124
